FAERS Safety Report 25155600 (Version 1)
Quarter: 2025Q2

REPORT INFORMATION
  Report Type: Spontaneous
  Country: US (occurrence: None)
  Receive Date: 20250402
  Receipt Date: 20250402
  Transmission Date: 20250717
  Serious: No
  Sender: FDA-CTU
  Company Number: None

PATIENT
  Age: 30 Year
  Sex: Female
  Weight: 71.1 kg

DRUGS (8)
  1. JOURNAVX [Suspect]
     Active Substance: SUZETRIGINE
     Indication: Chronic idiopathic pain syndrome
     Dosage: OTHER QUANTITY : 1 TABLET(S);?FREQUENCY : TWICE A DAY;?
     Route: 048
     Dates: start: 20250328, end: 20250402
  2. ADDERALL XR [Concomitant]
     Active Substance: AMPHETAMINE ASPARTATE\AMPHETAMINE SULFATE\DEXTROAMPHETAMINE SACCHARATE\DEXTROAMPHETAMINE SULFATE
  3. Adderall IR 15 [Concomitant]
  4. TRAMADOL [Concomitant]
     Active Substance: TRAMADOL
  5. Lyrica 200 [Concomitant]
  6. Cymbalta 60 [Concomitant]
  7. Ambien 10 [Concomitant]
  8. BENADRYL [Concomitant]
     Active Substance: DIPHENHYDRAMINE HYDROCHLORIDE

REACTIONS (1)
  - Oropharyngeal pain [None]
